FAERS Safety Report 23342153 (Version 1)
Quarter: 2023Q4

REPORT INFORMATION
  Report Type: Spontaneous
  Country: US (occurrence: US)
  Receive Date: 20231227
  Receipt Date: 20231227
  Transmission Date: 20240110
  Serious: No
  Sender: FDA-Public Use
  Company Number: US-JNJFOC-20230537799

PATIENT
  Age: 6 Year
  Sex: Male

DRUGS (5)
  1. TYLENOL EXTRA STRENGTH [Suspect]
     Active Substance: ACETAMINOPHEN
     Indication: Pain
     Dosage: STRENGTH-APPROXIMATELY 500MG OR 325MG, FIRST, SECOND AND THIRD TRIMESTER, DAILY
     Route: 064
     Dates: start: 201408, end: 201505
  2. TYLENOL [Suspect]
     Active Substance: ACETAMINOPHEN
     Indication: Migraine
     Route: 064
     Dates: start: 201408, end: 201505
  3. RITALIN [Concomitant]
     Active Substance: METHYLPHENIDATE HYDROCHLORIDE
     Indication: Affective disorder
     Route: 064
  4. ATIVAN [Concomitant]
     Active Substance: LORAZEPAM
     Indication: Affective disorder
     Route: 064
  5. VITAMIN D NOS [Concomitant]
     Active Substance: VITAMIN D NOS
     Indication: Pregnancy
     Route: 064
     Dates: start: 201408, end: 201505

REACTIONS (2)
  - Attention deficit hyperactivity disorder [Unknown]
  - Foetal exposure during pregnancy [Unknown]

NARRATIVE: CASE EVENT DATE: 20220301
